FAERS Safety Report 24460073 (Version 1)
Quarter: 2024Q4

REPORT INFORMATION
  Report Type: Report from Study
  Country: US (occurrence: US)
  Receive Date: 20241018
  Receipt Date: 20241018
  Transmission Date: 20250114
  Serious: No
  Sender: ROCHE
  Company Number: US-ROCHE-3569731

PATIENT
  Age: 47 Year
  Sex: Male

DRUGS (20)
  1. RITUXAN [Suspect]
     Active Substance: RITUXIMAB
     Indication: Thrombotic microangiopathy
     Dosage: EVERY 1 WEEK X 8 WEEKS? FREQUENCY TEXT:EVERY 1 WEEK X 8 WEEKS
     Route: 041
  2. COREG [Concomitant]
     Active Substance: CARVEDILOL
  3. CITRATE;DEXTROSE [Concomitant]
  4. HYDRALAZINE [Concomitant]
     Active Substance: HYDRALAZINE HYDROCHLORIDE
  5. PEPCID [Concomitant]
     Active Substance: FAMOTIDINE
  6. BENADRYL [Concomitant]
     Active Substance: DIPHENHYDRAMINE HYDROCHLORIDE
  7. ZYRTEC [Concomitant]
     Active Substance: CETIRIZINE HYDROCHLORIDE
  8. CALCIUM GLUCONATE [Concomitant]
     Active Substance: CALCIUM GLUCONATE
  9. ACETAMINOPHEN [Concomitant]
     Active Substance: ACETAMINOPHEN
  10. PANTOPRAZOLE [Concomitant]
     Active Substance: PANTOPRAZOLE
  11. SUCRALFATE [Concomitant]
     Active Substance: SUCRALFATE
  12. SODIUM CITRATE [Concomitant]
     Active Substance: SODIUM CITRATE
  13. PREDNISONE [Concomitant]
     Active Substance: PREDNISONE
  14. POTASSIUM CHLORIDE [Concomitant]
     Active Substance: POTASSIUM CHLORIDE
  15. SODIUM CHLORIDE [Concomitant]
     Active Substance: SODIUM CHLORIDE
  16. VALSARTAN [Concomitant]
     Active Substance: VALSARTAN
  17. SPIRONOLACTONE [Concomitant]
     Active Substance: SPIRONOLACTONE
  18. LASIX [Concomitant]
     Active Substance: FUROSEMIDE
  19. ALBUTEROL SULFATE [Concomitant]
     Active Substance: ALBUTEROL SULFATE
  20. AMLODIPINE [Concomitant]
     Active Substance: AMLODIPINE BESYLATE

REACTIONS (2)
  - Off label use [Unknown]
  - No adverse event [Unknown]
